FAERS Safety Report 5662814-X (Version None)
Quarter: 2008Q1

REPORT INFORMATION
  Report Type: 
  Country: None (occurrence: None)
  Receive Date: 20080313
  Receipt Date: 20080229
  Transmission Date: 20080703
  Serious: Yes (Hospitalization)
  Sender: FDA-Public Use
  Company Number: JP-AMGEN-US260701

PATIENT
  Sex: Female
  Weight: 61 kg

DRUGS (15)
  1. ENBREL [Suspect]
     Indication: RHEUMATOID ARTHRITIS
     Route: 058
     Dates: start: 20070413, end: 20071130
  2. PREDONINE [Suspect]
     Indication: RHEUMATOID ARTHRITIS
     Route: 048
     Dates: start: 20060401, end: 20070413
  3. PREDONINE [Suspect]
     Route: 048
     Dates: start: 20070413, end: 20070426
  4. PREDONINE [Suspect]
     Route: 048
     Dates: start: 20070426, end: 20070525
  5. PREDONINE [Suspect]
     Route: 048
     Dates: start: 20070526, end: 20070629
  6. PREDONINE [Suspect]
     Route: 048
     Dates: start: 20070630, end: 20070706
  7. PREDONINE [Suspect]
     Route: 048
     Dates: start: 20070707, end: 20070907
  8. PREDONINE [Suspect]
     Route: 048
     Dates: start: 20070908, end: 20070920
  9. PREDONINE [Suspect]
     Route: 048
     Dates: start: 20070921, end: 20071026
  10. PREDONINE [Suspect]
     Dosage: UNSPECIFIED DOSE
     Route: 048
     Dates: start: 20071027, end: 20071211
  11. PREDONINE [Suspect]
     Route: 048
     Dates: start: 20071211, end: 20071213
  12. PREDONINE [Suspect]
     Route: 048
     Dates: start: 20071213
  13. RHEUMATREX [Suspect]
     Indication: RHEUMATOID ARTHRITIS
     Dosage: 4 MG UNSPECIFIED FREQUENCY
     Route: 048
     Dates: start: 20060401, end: 20070413
  14. RHEUMATREX [Suspect]
     Dosage: 6 MG UNSPECIFIED FREQUENCY
     Route: 065
     Dates: start: 20070413, end: 20070928
  15. RHEUMATREX [Suspect]
     Dosage: 8 MG UNSPECIFIED FREQUENCY
     Dates: start: 20070929, end: 20071207

REACTIONS (1)
  - PNEUMOCYSTIS JIROVECI PNEUMONIA [None]
